FAERS Safety Report 16062360 (Version 1)
Quarter: 2019Q1

REPORT INFORMATION
  Report Type: Spontaneous
  Country: IT (occurrence: IT)
  Receive Date: 20190312
  Receipt Date: 20190312
  Transmission Date: 20190418
  Serious: Yes (Other)
  Sender: FDA-Public Use
  Company Number: IT-MYLANLABS-2019M1021588

PATIENT
  Age: 64 Year
  Sex: Male

DRUGS (6)
  1. DIUREMID                           /00032601/ [Concomitant]
     Active Substance: FUROSEMIDE
     Indication: BLOOD PRESSURE MANAGEMENT
     Dosage: UNK UNK, UNK
     Route: 065
  2. FORSTEO [Suspect]
     Active Substance: TERIPARATIDE
     Indication: PRODUCT USED FOR UNKNOWN INDICATION
     Dosage: UNK UNK, UNK
     Route: 065
  3. MAGALDRATE [Concomitant]
     Active Substance: MAGALDRATE
     Indication: ANTACID THERAPY
     Dosage: UNK UNK, UNK
     Route: 065
  4. IBUPROFEN. [Concomitant]
     Active Substance: IBUPROFEN
     Indication: PAIN
     Dosage: UNK UNK, UNK
     Route: 065
  5. RAMIPRIL. [Suspect]
     Active Substance: RAMIPRIL
     Indication: PRODUCT USED FOR UNKNOWN INDICATION
     Dosage: 5 UNK, UNK
     Route: 065
  6. AUGMENTAN                          /00756801/ [Concomitant]
     Active Substance: AMOXICILLIN\CLAVULANATE POTASSIUM
     Indication: PRODUCT USED FOR UNKNOWN INDICATION
     Dosage: UNK UNK, UNK
     Route: 065

REACTIONS (16)
  - Injection site pain [Unknown]
  - Injection site swelling [Unknown]
  - Dyspepsia [Unknown]
  - Injection site bruising [Unknown]
  - Injection site pruritus [Unknown]
  - Gastrointestinal disorder [Unknown]
  - Fatigue [Unknown]
  - Mobility decreased [Unknown]
  - Gait disturbance [Unknown]
  - Arthropathy [Unknown]
  - Blood pressure increased [Recovering/Resolving]
  - Arthralgia [Recovered/Resolved]
  - Pain in extremity [Recovered/Resolved]
  - Blood pressure decreased [Recovered/Resolved]
  - Injection site erythema [Unknown]
  - Vertigo [Not Recovered/Not Resolved]

NARRATIVE: CASE EVENT DATE: 20180322
